FAERS Safety Report 10073481 (Version 1)
Quarter: 2014Q2

REPORT INFORMATION
  Report Type: Spontaneous
  Country: US (occurrence: US)
  Receive Date: 20140411
  Receipt Date: 20140411
  Transmission Date: 20141212
  Serious: Yes (Hospitalization)
  Sender: FDA-Public Use
  Company Number: US-ABBVIE-14P-163-1220651-00

PATIENT
  Age: 61 Year
  Sex: Female
  Weight: 60.38 kg

DRUGS (10)
  1. HUMIRA [Suspect]
     Indication: CROHN^S DISEASE
     Route: 058
     Dates: start: 201211, end: 201403
  2. HUMIRA [Suspect]
     Route: 058
     Dates: start: 201403
  3. VERAPAMIL [Concomitant]
     Indication: HYPERTENSION
  4. PROZAC [Concomitant]
     Indication: DEPRESSION
  5. WELLBUTRIN [Concomitant]
     Indication: EX-TOBACCO USER
  6. SINGULAIR [Concomitant]
     Indication: HYPERSENSITIVITY
  7. HCTZ [Concomitant]
     Indication: HYPERTENSION
  8. 6-MP [Concomitant]
     Indication: CROHN^S DISEASE
  9. ASPIRIN [Concomitant]
     Indication: CARDIAC DISORDER
  10. PREDNISONE [Concomitant]
     Indication: CROHN^S DISEASE

REACTIONS (2)
  - Intestinal obstruction [Recovered/Resolved]
  - Intestinal obstruction [Recovered/Resolved]
